FAERS Safety Report 5356402-2 (Version None)
Quarter: 2007Q2

REPORT INFORMATION
  Report Type: 
  Country: None (occurrence: None)
  Receive Date: 20070613
  Receipt Date: 20070605
  Transmission Date: 20071010
  Serious: Yes (Hospitalization)
  Sender: FDA-Public Use
  Company Number: CA-MERCK-0701CAN00174

PATIENT
  Age: 84 Year
  Sex: Female

DRUGS (3)
  1. FOSAMAX [Suspect]
     Route: 048
     Dates: start: 20050601
  2. FOSAMAX [Suspect]
     Route: 048
     Dates: start: 20010101
  3. RABEPRAZOLE SODIUM [Concomitant]
     Route: 065
     Dates: start: 20051201

REACTIONS (3)
  - DIVERTICULITIS [None]
  - GASTRITIS [None]
  - PHARMACEUTICAL PRODUCT COMPLAINT [None]
